FAERS Safety Report 7699388-8 (Version None)
Quarter: 2011Q3

REPORT INFORMATION
  Report Type: 
  Country: None (occurrence: None)
  Receive Date: 20110819
  Receipt Date: 20110811
  Transmission Date: 20111222
  Serious: Yes (Hospitalization, Other)
  Sender: FDA-Public Use
  Company Number: US-BAYER-2011-024471

PATIENT
  Age: 41 Year
  Sex: Female
  Weight: 81.633 kg

DRUGS (28)
  1. YAZ [Suspect]
  2. YASMIN [Suspect]
     Indication: ORAL CONTRACEPTION
  3. DROSPIRENONE AND ETHINYL ESTRADIOL [Suspect]
     Indication: ACNE
     Dosage: UNK
     Route: 048
     Dates: start: 20040101, end: 20090101
  4. AMITRIPTYLINE HCL [Concomitant]
  5. YASMIN [Suspect]
     Indication: ACNE
     Dosage: UNK
     Route: 048
     Dates: start: 20040101, end: 20090101
  6. MAXZIDE [Concomitant]
     Indication: HYPERTENSION
  7. DEURATIO [Concomitant]
     Indication: NEUROPATHY PERIPHERAL
  8. ELAVIL [Concomitant]
     Indication: FIBROMYALGIA
  9. CLONAZEPAM [Concomitant]
  10. IBUPROFEN [Concomitant]
  11. PROMETHAZINE [Concomitant]
     Dosage: 25 MG, UNK
  12. YASMIN [Suspect]
     Indication: PREMENSTRUAL SYNDROME
  13. TOPROL-XL [Concomitant]
     Indication: HYPERTENSION
  14. TRIAMTERENE AND HYDROCHLOROTHIAZIDE [Concomitant]
  15. SINGULAIR [Concomitant]
  16. YAZ [Suspect]
     Indication: ACNE
     Dosage: UNK
     Route: 048
     Dates: start: 20040101, end: 20090101
  17. DROSPIRENONE AND ETHINYL ESTRADIOL [Suspect]
     Indication: PREMENSTRUAL SYNDROME
  18. DROSPIRENONE AND ETHINYL ESTRADIOL [Suspect]
  19. YASMIN [Suspect]
  20. CYMBALTA [Concomitant]
     Indication: FIBROMYALGIA
  21. ULTRACET [Concomitant]
     Indication: PAIN
  22. SEROQUEL [Concomitant]
  23. GABAPENTIN [Concomitant]
     Dosage: 600 MG, UNK
  24. YAZ [Suspect]
     Indication: ORAL CONTRACEPTION
  25. YAZ [Suspect]
     Indication: PREMENSTRUAL SYNDROME
  26. THYROID TAB [Concomitant]
  27. TRAZODONE HCL [Concomitant]
  28. NEXIUM [Concomitant]

REACTIONS (4)
  - BILIARY DYSKINESIA [None]
  - DEEP VEIN THROMBOSIS [None]
  - PAIN [None]
  - CHOLECYSTECTOMY [None]
